FAERS Safety Report 23193244 (Version 3)
Quarter: 2023Q4

REPORT INFORMATION
  Report Type: Other
  Country: US (occurrence: US)
  Receive Date: 20231116
  Receipt Date: 20231122
  Transmission Date: 20240109
  Serious: No
  Sender: FDA-Public Use
  Company Number: US-TRAVERE-2023TVT00443

PATIENT
  Age: 43 Year
  Sex: Male

DRUGS (14)
  1. FILSPARI [Suspect]
     Active Substance: SPARSENTAN
     Indication: IgA nephropathy
     Route: 048
     Dates: start: 202307
  2. FILSPARI [Suspect]
     Active Substance: SPARSENTAN
     Indication: Haematuria
  3. FILSPARI [Suspect]
     Active Substance: SPARSENTAN
     Indication: Chronic kidney disease
  4. PREDNISONE [Concomitant]
     Active Substance: PREDNISONE
  5. CYCLOPHOSPHAMIDE [Concomitant]
     Active Substance: CYCLOPHOSPHAMIDE
  6. ALLOPURINOL [Concomitant]
     Active Substance: ALLOPURINOL
  7. ATORVASTATIN CALCIUM [Concomitant]
     Active Substance: ATORVASTATIN CALCIUM
  8. BACTRIM [Concomitant]
     Active Substance: SULFAMETHOXAZOLE\TRIMETHOPRIM
  9. Carvedilol ER [Concomitant]
  10. ELIQUIS [Concomitant]
     Active Substance: APIXABAN
  11. FAMOTIDINE [Concomitant]
     Active Substance: FAMOTIDINE
  12. TYLENOL [Concomitant]
     Active Substance: ACETAMINOPHEN
  13. VALGANCICLOVIR HYDROCHLORIDE [Concomitant]
     Active Substance: VALGANCICLOVIR HYDROCHLORIDE
  14. VITAMIN D3 [Concomitant]
     Active Substance: CHOLECALCIFEROL

REACTIONS (13)
  - Eye swelling [Unknown]
  - Arthralgia [Unknown]
  - Oedema peripheral [Unknown]
  - Face oedema [Unknown]
  - Alopecia [Unknown]
  - Generalised oedema [Unknown]
  - Skin burning sensation [Unknown]
  - Fatigue [Unknown]
  - Abdominal discomfort [Unknown]
  - Abdominal pain upper [Unknown]
  - Abdominal distension [Unknown]
  - Muscle spasms [Unknown]
  - Anaemia [Unknown]
